FAERS Safety Report 4738061-2 (Version None)
Quarter: 2005Q3

REPORT INFORMATION
  Report Type: 
  Country: None (occurrence: None)
  Receive Date: 20050805
  Receipt Date: 20050805
  Transmission Date: 20060218
  Serious: Yes (Hospitalization)
  Sender: FDA-Public Use
  Company Number: None

PATIENT
  Age: 74 Year
  Sex: Female
  Weight: 73.3 kg

DRUGS (3)
  1. HEPARIN [Suspect]
     Indication: CORONARY ARTERY SURGERY
     Dosage: 5000 UNITS IV
     Route: 042
     Dates: start: 20041117
  2. MULTIPLE MEDS [Concomitant]
  3. HIT [Concomitant]

REACTIONS (1)
  - HEPARIN-INDUCED THROMBOCYTOPENIA [None]
